FAERS Safety Report 21525332 (Version 2)
Quarter: 2022Q4

REPORT INFORMATION
  Report Type: Spontaneous
  Country: IT (occurrence: IT)
  Receive Date: 20221030
  Receipt Date: 20221120
  Transmission Date: 20230113
  Serious: Yes (Hospitalization)
  Sender: FDA-Public Use
  Company Number: None

PATIENT
  Age: 80 Year
  Sex: Female

DRUGS (4)
  1. CIPROFLOXACIN [Suspect]
     Active Substance: CIPROFLOXACIN
     Indication: Skin ulcer
     Dosage: 500 MG, Q12H (500 MG X 2/DIE)
     Route: 048
     Dates: start: 20220722, end: 20220728
  2. RAMIPRIL [Concomitant]
     Active Substance: RAMIPRIL
     Indication: Hypertension
     Dosage: 2,5 MG/DIE
     Route: 048
  3. EDOXABAN TOSYLATE [Concomitant]
     Active Substance: EDOXABAN TOSYLATE
     Indication: Atrial fibrillation
     Dosage: 60 MG/DIE
     Route: 048
  4. BACTRIM [Concomitant]
     Active Substance: SULFAMETHOXAZOLE\TRIMETHOPRIM
     Indication: Product used for unknown indication
     Dosage: 1 CP X2/DIE
     Route: 048

REACTIONS (1)
  - Dermatitis exfoliative [Recovered/Resolved]

NARRATIVE: CASE EVENT DATE: 20220728
